FAERS Safety Report 12430607 (Version 1)
Quarter: 2016Q2

REPORT INFORMATION
  Report Type: Spontaneous
  Country: US (occurrence: US)
  Receive Date: 20160602
  Receipt Date: 20160602
  Transmission Date: 20160815
  Serious: Yes (Other)
  Sender: FDA-Public Use
  Company Number: US-FRENSENIUS MEDICAL CARE RENAL THERAPIES GROUP-FMC-1605-000090

PATIENT
  Sex: Female
  Weight: 62.65 kg

DRUGS (1)
  1. DELFLEX [Suspect]
     Active Substance: CALCIUM CHLORIDE\DEXTROSE\MAGNESIUM CHLORIDE\SODIUM CHLORIDE\SODIUM LACTATE
     Indication: END STAGE RENAL DISEASE
     Route: 033

REACTIONS (3)
  - Inadequate aseptic technique in use of product [None]
  - Staphylococcus test positive [None]
  - Peritonitis bacterial [Recovered/Resolved]
